FAERS Safety Report 7769714-X (Version None)
Quarter: 2011Q3

REPORT INFORMATION
  Report Type: 
  Country: None (occurrence: None)
  Receive Date: 20110922
  Receipt Date: 20101027
  Transmission Date: 20111222
  Serious: No
  Sender: FDA-Public Use
  Company Number: US-ASTRAZENECA-2010SE51050

PATIENT
  Age: 30 Year
  Sex: Male

DRUGS (3)
  1. SEROQUEL XR [Suspect]
     Indication: MAJOR DEPRESSION
     Route: 048
  2. CELEXA [Concomitant]
  3. SEROQUEL XR [Suspect]
     Route: 048

REACTIONS (1)
  - SLUGGISHNESS [None]
